FAERS Safety Report 17066750 (Version 1)
Quarter: 2019Q4

REPORT INFORMATION
  Report Type: Report from Study
  Country: CA (occurrence: CA)
  Receive Date: 20191122
  Receipt Date: 20191122
  Transmission Date: 20200122
  Serious: Yes (Hospitalization)
  Sender: FDA-Public Use
  Company Number: CA-TAIHO ONCOLOGY  INC-EU-2019-03860

PATIENT
  Age: 79 Year
  Sex: Female
  Weight: 69.9 kg

DRUGS (1)
  1. LONSURF [Suspect]
     Active Substance: TIPIRACIL HYDROCHLORIDE\TRIFLURIDINE
     Indication: COLORECTAL CANCER
     Dosage: CYCLE 4 ENDED ON 04/NOV/2019.?CURRENT CYCLE 5 STARTED DELAYED BY 9 DAYS ON 14/NOV/2019.
     Route: 048
     Dates: start: 20190701

REACTIONS (2)
  - Neutropenia [Recovered/Resolved]
  - Intestinal malrotation [Recovered/Resolved]

NARRATIVE: CASE EVENT DATE: 20191103
